FAERS Safety Report 17963622 (Version 1)
Quarter: 2020Q2

REPORT INFORMATION
  Report Type: Spontaneous
  Country: US (occurrence: US)
  Receive Date: 20200630
  Receipt Date: 20200630
  Transmission Date: 20200714
  Serious: Yes (Other)
  Sender: FDA-Public Use
  Company Number: None

PATIENT
  Age: 27 Year
  Sex: Female
  Weight: 147.4 kg

DRUGS (8)
  1. CHOLECALCIFEROL 2,000 IU PO DAILY WITH FOOD [Concomitant]
     Dates: start: 20200624, end: 20200629
  2. REMDESIVIR. [Suspect]
     Active Substance: REMDESIVIR
     Indication: COVID-19 PNEUMONIA
     Route: 042
     Dates: start: 20200617, end: 20200625
  3. ZINC SULFATE 200 MG PO DAILY [Concomitant]
     Dates: start: 20200624, end: 20200629
  4. ASCORBIC ACID 500 MG PO BID  WITH FOOD [Concomitant]
     Dates: start: 20200624, end: 20200629
  5. METHYLPREDNISOLONE 20 MG IV Q6H [Concomitant]
     Dates: start: 20200617, end: 20200627
  6. ENOXAPARIN 80 MG SQ Q12H [Concomitant]
     Dates: start: 20200617, end: 20200629
  7. BENONATE 200 MG 2 CAPS PO Q8H PRN FOR COUGH [Concomitant]
     Dates: start: 20200617, end: 20200629
  8. PANTOPRAZOLE 40 MG PO DAILY [Concomitant]
     Dates: start: 20200620, end: 20200629

REACTIONS (2)
  - Hepatic steatosis [None]
  - Transaminases increased [None]

NARRATIVE: CASE EVENT DATE: 20200625
